FAERS Safety Report 16983229 (Version 1)
Quarter: 2019Q4

REPORT INFORMATION
  Report Type: Spontaneous
  Country: CA (occurrence: CA)
  Receive Date: 20191101
  Receipt Date: 20191101
  Transmission Date: 20200122
  Serious: Yes (Other)
  Sender: FDA-Public Use
  Company Number: CA-ABBVIE-19K-028-2983585-00

PATIENT
  Sex: Female

DRUGS (1)
  1. ORILISSA [Suspect]
     Active Substance: ELAGOLIX SODIUM
     Indication: PRODUCT USED FOR UNKNOWN INDICATION
     Route: 048
     Dates: start: 201906

REACTIONS (6)
  - Insomnia [Unknown]
  - Pain [Unknown]
  - Hot flush [Unknown]
  - Nausea [Unknown]
  - Breast cyst [Unknown]
  - Fall [Unknown]

NARRATIVE: CASE EVENT DATE: 2019
